FAERS Safety Report 23329479 (Version 1)
Quarter: 2023Q4

REPORT INFORMATION
  Report Type: Spontaneous
  Country: US (occurrence: US)
  Receive Date: 20231222
  Receipt Date: 20231222
  Transmission Date: 20240110
  Serious: No
  Sender: FDA-Public Use
  Company Number: US-Merck Healthcare KGaA-2023492963

PATIENT
  Sex: Male

DRUGS (1)
  1. SEROSTIM [Suspect]
     Active Substance: SOMATROPIN
     Indication: Product used for unknown indication

REACTIONS (4)
  - Vision blurred [Unknown]
  - Blood glucose increased [Recovering/Resolving]
  - Peripheral swelling [Unknown]
  - Glycosylated haemoglobin increased [Unknown]
